FAERS Safety Report 6208228-5 (Version None)
Quarter: 2009Q2

REPORT INFORMATION
  Report Type: 
  Country: None (occurrence: None)
  Receive Date: 20090529
  Receipt Date: 20090518
  Transmission Date: 20091009
  Serious: Yes (Life-Threatening, Other)
  Sender: FDA-Public Use
  Company Number: JP-BAYER-200911577BYL

PATIENT
  Age: 64 Year
  Sex: Male
  Weight: 57 kg

DRUGS (21)
  1. FLUDARA [Suspect]
     Indication: CHRONIC MYELOID LEUKAEMIA TRANSFORMATION
     Dosage: TOTAL DAILY DOSE: 30 MG/M2  UNIT DOSE: 50 MG
     Route: 042
     Dates: start: 20081013, end: 20081018
  2. DIPRIVAN [Suspect]
     Indication: EPILEPSY
     Dosage: AS USED: 150 ML
     Route: 041
     Dates: start: 20081106, end: 20081106
  3. DIPRIVAN [Suspect]
     Dosage: AS USED: 300 ML
     Route: 041
     Dates: start: 20081112, end: 20081113
  4. DIPRIVAN [Suspect]
     Dosage: AS USED: 100 ML
     Route: 041
     Dates: start: 20081118, end: 20081118
  5. DIPRIVAN [Suspect]
     Dosage: AS USED: 200 ML
     Route: 041
     Dates: start: 20081123, end: 20081124
  6. DIPRIVAN [Suspect]
     Dosage: AS USED: 200 ML
     Route: 041
     Dates: start: 20081116, end: 20081116
  7. DIPRIVAN [Suspect]
     Dosage: AS USED: 150 ML
     Route: 041
     Dates: start: 20081114, end: 20081114
  8. DIPRIVAN [Suspect]
     Dosage: AS USED: 150 ML
     Route: 041
     Dates: start: 20081119, end: 20081122
  9. DIPRIVAN [Suspect]
     Dosage: AS USED: 250 ML
     Route: 041
     Dates: start: 20081115, end: 20081115
  10. DIPRIVAN [Suspect]
     Dosage: AS USED: 150 ML
     Route: 041
     Dates: start: 20081117, end: 20081117
  11. ALKERAN [Concomitant]
     Indication: CHRONIC MYELOID LEUKAEMIA TRANSFORMATION
     Dosage: AS USED: 40 MG/M2
     Route: 042
     Dates: start: 20081017, end: 20081018
  12. BUSULFEX [Concomitant]
     Indication: CHRONIC MYELOID LEUKAEMIA TRANSFORMATION
     Dosage: AS USED: 3.2 MG/KG
     Route: 042
     Dates: start: 20081014, end: 20081015
  13. DEPAKENE [Concomitant]
     Indication: CONVULSION PROPHYLAXIS
     Dosage: TOTAL DAILY DOSE: 800 MG
     Route: 048
     Dates: start: 20081013, end: 20081016
  14. PROGRAF [Concomitant]
     Route: 041
     Dates: start: 20081020, end: 20081030
  15. PROGRAF [Concomitant]
     Route: 041
     Dates: start: 20081121, end: 20090115
  16. CELLCEPT [Concomitant]
     Dosage: TOTAL DAILY DOSE: 2000 MG  UNIT DOSE: 250 MG
     Route: 048
     Dates: start: 20081025, end: 20081031
  17. CELLCEPT [Concomitant]
     Dosage: TOTAL DAILY DOSE: 2000 MG  UNIT DOSE: 250 MG
     Route: 048
     Dates: start: 20081112, end: 20081113
  18. DEPAKENE [Concomitant]
     Dosage: TOTAL DAILY DOSE: 800 MG
     Route: 048
     Dates: start: 20081110, end: 20081113
  19. CONCENTRATED RED CELLS [Concomitant]
     Indication: PACKED RED BLOOD CELL TRANSFUSION
     Route: 042
     Dates: start: 20081013, end: 20090120
  20. PLATELETS [Concomitant]
     Indication: PLATELET TRANSFUSION
     Route: 042
     Dates: start: 20081014, end: 20090127
  21. FRESH FROZEN PLASMA [Concomitant]
     Indication: BLOOD PRODUCT TRANSFUSION
     Route: 042
     Dates: start: 20081014, end: 20081201

REACTIONS (5)
  - CYTOMEGALOVIRUS VIRAEMIA [None]
  - EPILEPSY [None]
  - FUNGAL INFECTION [None]
  - RHABDOMYOLYSIS [None]
  - SEPSIS [None]
